FAERS Safety Report 7969147-7 (Version None)
Quarter: 2011Q4

REPORT INFORMATION
  Report Type: 
  Country: None (occurrence: None)
  Receive Date: 20111208
  Receipt Date: 20111128
  Transmission Date: 20120403
  Serious: Yes (Other)
  Sender: FDA-Public Use
  Company Number: TPA2011A08033

PATIENT
  Age: 70 Year
  Sex: Male
  Weight: 77.1115 kg

DRUGS (13)
  1. ATENOLOL [Concomitant]
  2. RAMIPRIL [Concomitant]
  3. GLIMEPIRIDE [Concomitant]
  4. METFORMIN HCL [Concomitant]
  5. HYDROCODONE BITARTRATE [Concomitant]
  6. IMDUR [Concomitant]
  7. DIAZEPAM [Concomitant]
  8. OXYCONTIN [Concomitant]
  9. SERTRALINE HYDROCHLORIDE [Concomitant]
  10. ACTOS [Suspect]
     Indication: DIABETES MELLITUS
     Dosage: 30 MG, 1 IN 1 D, PER ORAL
     Route: 048
     Dates: start: 20091128
  11. PLAVIX [Concomitant]
  12. LIPITOR [Concomitant]
  13. ASPIRIN [Concomitant]

REACTIONS (2)
  - CHROMATURIA [None]
  - LUNG NEOPLASM MALIGNANT [None]
